FAERS Safety Report 17828292 (Version 1)
Quarter: 2020Q2

REPORT INFORMATION
  Report Type: Spontaneous
  Country: DE (occurrence: DE)
  Receive Date: 20200527
  Receipt Date: 20200527
  Transmission Date: 20200714
  Serious: Yes (Other)
  Sender: FDA-Public Use
  Company Number: DE-SLATE RUN PHARMACEUTICALS-20DE000137

PATIENT

DRUGS (2)
  1. CINACALCET HYDROCHLORIDE. [Suspect]
     Active Substance: CINACALCET HYDROCHLORIDE
     Indication: HYPERPARATHYROIDISM PRIMARY
     Dosage: 60 MILLIGRAM, QD
     Route: 065
  2. CINACALCET HYDROCHLORIDE. [Suspect]
     Active Substance: CINACALCET HYDROCHLORIDE
     Dosage: 30 MILLIGRAM, QD
     Route: 065

REACTIONS (3)
  - Treatment failure [Unknown]
  - Parathyroid tumour benign [Recovered/Resolved]
  - Off label use [Unknown]
